FAERS Safety Report 5274419-3 (Version None)
Quarter: 2007Q1

REPORT INFORMATION
  Report Type: 
  Country: None (occurrence: None)
  Receive Date: 20070323
  Receipt Date: 20070314
  Transmission Date: 20070707
  Serious: Yes (Other)
  Sender: FDA-Public Use
  Company Number: JP-PFIZER INC-2007016457

PATIENT
  Age: 66 Year
  Sex: Female

DRUGS (2)
  1. NORVASC [Suspect]
     Indication: HYPERTENSION
     Route: 048
     Dates: start: 20070207, end: 20070226
  2. FAMOTIDINE [Concomitant]
     Route: 048

REACTIONS (2)
  - JAUNDICE [None]
  - PANCREATIC CARCINOMA [None]
